FAERS Safety Report 6175521-4 (Version None)
Quarter: 2009Q2

REPORT INFORMATION
  Report Type: 
  Country: None (occurrence: None)
  Receive Date: 20090429
  Receipt Date: 20090417
  Transmission Date: 20091009
  Serious: Yes (Other)
  Sender: FDA-Public Use
  Company Number: 2009EU001659

PATIENT
  Age: 41 Year
  Sex: Male

DRUGS (2)
  1. VESICARE [Suspect]
     Indication: PROSTATITIS
     Dosage: 5 MG, UID/QD, ORAL
     Route: 048
     Dates: start: 20090301
  2. CIPROFLOXACIN [Suspect]
     Indication: PROSTATITIS
     Dosage: 500 MG, UID/QD, ORAL
     Route: 048
     Dates: start: 20081101, end: 20090401

REACTIONS (4)
  - ASTHENIA [None]
  - DISCOMFORT [None]
  - DRUG INTERACTION [None]
  - MOTOR DYSFUNCTION [None]
